FAERS Safety Report 9717773 (Version 2)
Quarter: 2013Q4

REPORT INFORMATION
  Report Type: Spontaneous
  Country: GB (occurrence: GB)
  Receive Date: 20131127
  Receipt Date: 20131212
  Transmission Date: 20140711
  Serious: Yes (Other)
  Sender: FDA-Public Use
  Company Number: GB-GLAXOSMITHKLINE-B0945929A

PATIENT
  Sex: Male

DRUGS (2)
  1. REVOLADE [Suspect]
     Indication: IMMUNE THROMBOCYTOPENIC PURPURA
     Dosage: 50MG PER DAY
     Route: 065
     Dates: start: 201310
  2. THYROXINE [Concomitant]

REACTIONS (7)
  - Transient ischaemic attack [Recovering/Resolving]
  - Full blood count increased [Recovering/Resolving]
  - Diplopia [Recovering/Resolving]
  - Rebound effect [Recovering/Resolving]
  - Contusion [Recovering/Resolving]
  - Blood blister [Recovering/Resolving]
  - Epistaxis [Recovering/Resolving]
